FAERS Safety Report 5366839-3 (Version None)
Quarter: 2007Q2

REPORT INFORMATION
  Report Type: 
  Country: None (occurrence: None)
  Receive Date: 20070622
  Receipt Date: 20061220
  Transmission Date: 20071010
  Serious: No
  Sender: FDA-Public Use
  Company Number: US-ASTRAZENECA-2006UW28317

PATIENT
  Age: 87 Year
  Sex: Male
  Weight: 68 kg

DRUGS (6)
  1. RHINOCORT [Suspect]
     Indication: SINUS DISORDER
     Dosage: 30 METER SPRAY UNIT
     Route: 045
  2. ADVAIR DISKUS 100/50 [Concomitant]
  3. AVAPRO [Concomitant]
  4. HYTRIN [Concomitant]
  5. SPIRIVA [Concomitant]
  6. HYDROCHLOROTHIAZIDE [Concomitant]

REACTIONS (1)
  - FALL [None]
